FAERS Safety Report 4910375-2 (Version None)
Quarter: 2006Q1

REPORT INFORMATION
  Report Type: 
  Country: None (occurrence: None)
  Receive Date: 20060209
  Receipt Date: 20060124
  Transmission Date: 20060701
  Serious: Yes (Hospitalization)
  Sender: FDA-Public Use
  Company Number: JP-JNJFOC-20060201463

PATIENT
  Age: 61 Year
  Sex: Female

DRUGS (8)
  1. PEPCID AC [Suspect]
     Indication: GASTRITIS
     Dosage: IN 1 AS NECESSARY, ORAL ; 10 MG, 2 IN 1 DAY ORAL
     Route: 048
     Dates: start: 20051101, end: 20051201
  2. PEPCID AC [Suspect]
     Indication: PAIN
     Dosage: IN 1 AS NECESSARY, ORAL ; 10 MG, 2 IN 1 DAY ORAL
     Route: 048
     Dates: start: 20051101, end: 20051201
  3. PEPCID AC [Suspect]
     Indication: GASTRITIS
     Dosage: IN 1 AS NECESSARY, ORAL ; 10 MG, 2 IN 1 DAY ORAL
     Route: 048
     Dates: start: 20040101
  4. PEPCID AC [Suspect]
     Indication: PAIN
     Dosage: IN 1 AS NECESSARY, ORAL ; 10 MG, 2 IN 1 DAY ORAL
     Route: 048
     Dates: start: 20040101
  5. OTC COLD MEDICINE (OTHER COLD COMBINATION PREPARATIONS) [Concomitant]
  6. HYOSCINE HBR HYT [Concomitant]
  7. LAC-B (LACTOBACILLU SBIFIDUS, LYOPHILIZED) [Concomitant]
  8. SELBEX (TEPRENONE) [Concomitant]

REACTIONS (8)
  - ALANINE AMINOTRANSFERASE INCREASED [None]
  - ASPARTATE AMINOTRANSFERASE INCREASED [None]
  - BLOOD ALKALINE PHOSPHATASE INCREASED [None]
  - BLOOD LACTATE DEHYDROGENASE INCREASED [None]
  - DUODENITIS [None]
  - GAMMA-GLUTAMYLTRANSFERASE INCREASED [None]
  - JAUNDICE [None]
  - LIVER DISORDER [None]
